FAERS Safety Report 20605789 (Version 1)
Quarter: 2022Q1

REPORT INFORMATION
  Report Type: Spontaneous
  Country: TR (occurrence: TR)
  Receive Date: 20220317
  Receipt Date: 20220317
  Transmission Date: 20220423
  Serious: Yes (Other)
  Sender: FDA-Public Use
  Company Number: TR-MACLEODS PHARMACEUTICALS US LTD-MAC2022034809

PATIENT

DRUGS (1)
  1. SILODOSIN [Suspect]
     Active Substance: SILODOSIN
     Indication: Lower urinary tract symptoms
     Dosage: 8 MILLIGRAM, QD
     Route: 065

REACTIONS (2)
  - Erectile dysfunction [Unknown]
  - Priapism [Unknown]
